FAERS Safety Report 8443769-1 (Version None)
Quarter: 2012Q2

REPORT INFORMATION
  Report Type: 
  Country: None (occurrence: None)
  Receive Date: 20120618
  Receipt Date: 20120612
  Transmission Date: 20120825
  Serious: Yes (Hospitalization)
  Sender: FDA-Public Use
  Company Number: BR-US-EMD SERONO, INC.-7133958

PATIENT
  Sex: Female

DRUGS (4)
  1. REBIF [Suspect]
     Indication: RELAPSING-REMITTING MULTIPLE SCLEROSIS
     Dates: start: 20111101
  2. ALIVIUM (IBUPROFEN) [Concomitant]
     Indication: PRODUCT USED FOR UNKNOWN INDICATION
  3. EXODUS [Concomitant]
     Indication: PRODUCT USED FOR UNKNOWN INDICATION
  4. ALTROX (ALPRAZOLAM) [Concomitant]
     Indication: PRODUCT USED FOR UNKNOWN INDICATION

REACTIONS (4)
  - GAIT DISTURBANCE [None]
  - BURNING SENSATION [None]
  - PAIN IN EXTREMITY [None]
  - MUSCULAR WEAKNESS [None]
